FAERS Safety Report 25985535 (Version 1)
Quarter: 2025Q4

REPORT INFORMATION
  Report Type: Spontaneous
  Country: EU (occurrence: EU)
  Receive Date: 20251101
  Receipt Date: 20251101
  Transmission Date: 20260117
  Serious: Yes (Hospitalization)
  Sender: NOVARTIS
  Company Number: EU-002147023-NVSC2025DE167291

PATIENT
  Age: 44 Year
  Sex: Female

DRUGS (19)
  1. FINGOLIMOD [Suspect]
     Active Substance: FINGOLIMOD
     Indication: Relapsing-remitting multiple sclerosis
     Dosage: 0.5 MG
     Route: 048
     Dates: start: 20201012
  2. FLUOXETINE HYDROCHLORIDE [Concomitant]
     Active Substance: FLUOXETINE HYDROCHLORIDE
     Indication: Depression
     Dosage: 40 MG, QD
     Route: 048
     Dates: start: 2015
  3. PROMETHAZINE [Concomitant]
     Active Substance: PROMETHAZINE HYDROCHLORIDE
     Indication: Sleep disorder
     Dosage: 100 MG, QD
     Route: 048
     Dates: start: 20181204
  4. PREGABALIN [Concomitant]
     Active Substance: PREGABALIN
     Indication: Sensory disturbance
     Dosage: 50 MG, BID
     Route: 065
     Dates: start: 20181204
  5. BACLOFEN [Concomitant]
     Active Substance: BACLOFEN
     Indication: Muscle spasticity
     Dosage: 10 MG, QD
     Route: 048
     Dates: start: 20190326
  6. CHOLECALCIFEROL [Concomitant]
     Active Substance: CHOLECALCIFEROL
     Indication: Vitamin supplementation
     Dosage: UNK, QW (2857 INTERNATIONAL UNIT(S) (20000 INTERNATIONAL UNIT)
     Route: 048
     Dates: start: 20201012
  7. OMEPRAZOLE [Concomitant]
     Active Substance: OMEPRAZOLE
     Indication: Multiple sclerosis relapse
     Dosage: 40 MG, QD
     Route: 048
     Dates: start: 20210909, end: 20210914
  8. OMEPRAZOLE [Concomitant]
     Active Substance: OMEPRAZOLE
     Dosage: 40 MG, QD
     Route: 048
     Dates: start: 20220315, end: 20220317
  9. OMEPRAZOLE [Concomitant]
     Active Substance: OMEPRAZOLE
     Dosage: 20 MG, QD
     Route: 048
     Dates: start: 20220504, end: 20220506
  10. OMEPRAZOLE [Concomitant]
     Active Substance: OMEPRAZOLE
     Dosage: 20 MG, QD
     Route: 048
     Dates: start: 20231024, end: 20231026
  11. METHYLPREDNISOLONE [Concomitant]
     Active Substance: METHYLPREDNISOLONE
     Indication: Multiple sclerosis relapse
     Dosage: 1 G, QD
     Route: 042
     Dates: start: 20210910, end: 20210910
  12. METHYLPREDNISOLONE [Concomitant]
     Active Substance: METHYLPREDNISOLONE
     Dosage: 1 G, QD
     Route: 042
     Dates: start: 20210913, end: 20210914
  13. METHYLPREDNISOLONE [Concomitant]
     Active Substance: METHYLPREDNISOLONE
     Dosage: 1 G, QD
     Route: 042
     Dates: start: 20220315, end: 20220317
  14. METHYLPREDNISOLONE [Concomitant]
     Active Substance: METHYLPREDNISOLONE
     Dosage: 1 G, QD
     Route: 042
     Dates: start: 20220504, end: 20220506
  15. METHYLPREDNISOLONE [Concomitant]
     Active Substance: METHYLPREDNISOLONE
     Dosage: 1 G, QD
     Route: 042
     Dates: start: 20231024, end: 20231026
  16. PREDNISOLONE [Concomitant]
     Active Substance: PREDNISOLONE
     Indication: Multiple sclerosis relapse
     Dosage: 50 MG, QD
     Route: 048
     Dates: start: 20210915, end: 20210925
  17. AMITRIPTYLINE [Concomitant]
     Active Substance: AMITRIPTYLINE
     Indication: Tension headache
     Dosage: 25 MG, PRN
     Route: 048
     Dates: start: 20220111
  18. ZOPICLONE [Concomitant]
     Active Substance: ZOPICLONE
     Indication: Multiple sclerosis relapse
     Dosage: 3.75 MG, QD
     Route: 048
     Dates: start: 20231024, end: 20231026
  19. KESIMPTA [Concomitant]
     Active Substance: OFATUMUMAB
     Indication: Multiple sclerosis relapse
     Dosage: 20 MG, QMO
     Route: 058
     Dates: start: 20231204, end: 202504

REACTIONS (2)
  - Ectopic pregnancy [Recovered/Resolved]
  - Maternal exposure before pregnancy [Recovered/Resolved]

NARRATIVE: CASE EVENT DATE: 20250801
